FAERS Safety Report 4696930-6 (Version None)
Quarter: 2005Q2

REPORT INFORMATION
  Report Type: 
  Country: None (occurrence: None)
  Receive Date: 20050622
  Receipt Date: 20050615
  Transmission Date: 20051028
  Serious: Yes (Death, Other)
  Sender: FDA-Public Use
  Company Number: PHBS2005JP08532

PATIENT
  Age: 64 Year
  Sex: Female

DRUGS (2)
  1. CYCLOSPORINE [Suspect]
     Indication: CORD BLOOD TRANSPLANT THERAPY
     Dosage: UNK, UNK
     Route: 065
     Dates: start: 20041001
  2. METHOTREXATE [Suspect]
     Indication: CORD BLOOD TRANSPLANT THERAPY
     Route: 065
     Dates: start: 20041001

REACTIONS (4)
  - CYTOMEGALOVIRUS ENTEROCOLITIS [None]
  - GRAFT VERSUS HOST DISEASE [None]
  - THROMBOTIC MICROANGIOPATHY [None]
  - TOXIC INDUCED ENCEPHALOPATHY [None]
